FAERS Safety Report 25974453 (Version 1)
Quarter: 2025Q4

REPORT INFORMATION
  Report Type: Spontaneous
  Country: US (occurrence: None)
  Receive Date: 20251029
  Receipt Date: 20251029
  Transmission Date: 20260118
  Serious: Yes (Other)
  Sender: FDA-CTU
  Company Number: None

PATIENT
  Age: 53 Year
  Sex: Female
  Weight: 96.75 kg

DRUGS (1)
  1. VIZZ [Suspect]
     Active Substance: ACECLIDINE HYDROCHLORIDE
     Indication: Presbyopia
     Dates: start: 20251021, end: 20251022

REACTIONS (3)
  - Visual field defect [None]
  - Nausea [None]
  - Headache [None]

NARRATIVE: CASE EVENT DATE: 20251022
